FAERS Safety Report 5819756-6 (Version None)
Quarter: 2008Q3

REPORT INFORMATION
  Report Type: 
  Country: None (occurrence: None)
  Receive Date: 20080723
  Receipt Date: 20080714
  Transmission Date: 20090109
  Serious: Yes (Hospitalization)
  Sender: FDA-Public Use
  Company Number: SE-PFIZER INC-2008058370

PATIENT
  Sex: Female

DRUGS (14)
  1. CLINDAMYCIN HCL [Suspect]
     Indication: PAIN IN EXTREMITY
  2. TRADOLAN [Suspect]
     Indication: PAIN IN EXTREMITY
  3. PANCREON [Concomitant]
  4. OPTINATE [Concomitant]
  5. FOLACIN [Concomitant]
     Route: 048
  6. LEVOTHYROXINE SODIUM [Concomitant]
     Route: 048
  7. ACETAMINOPHEN [Concomitant]
     Route: 048
  8. BEHEPAN [Concomitant]
     Route: 048
  9. EMGESAN [Concomitant]
  10. ACINIL [Concomitant]
  11. SIMVASTATIN [Concomitant]
     Route: 048
  12. ISOSORBIDE MONONITRATE [Concomitant]
  13. ASPIRIN [Concomitant]
     Route: 048
  14. KALCIPOS-D [Concomitant]

REACTIONS (2)
  - BLOOD CREATININE INCREASED [None]
  - NAUSEA [None]
